FAERS Safety Report 14098623 (Version 1)
Quarter: 2017Q4

REPORT INFORMATION
  Report Type: Spontaneous
  Country: LT (occurrence: LT)
  Receive Date: 20171017
  Receipt Date: 20171017
  Transmission Date: 20180321
  Serious: Yes (Hospitalization)
  Sender: FDA-Public Use
  Company Number: PHHY2017LT150128

PATIENT
  Age: 63 Year
  Sex: Male

DRUGS (3)
  1. SIRDALUD [Suspect]
     Active Substance: TIZANIDINE
     Indication: BACK PAIN
     Dosage: 2 MG, QD
     Route: 065
     Dates: start: 20171009, end: 20171009
  2. DICLAC [Suspect]
     Active Substance: DICLOFENAC
     Indication: BACK PAIN
     Dosage: 1 AMPOULE PER DAY (EXPECTED TILL 13- OCT- 2017 AS PRESCRIBED 5 AMPOULES
     Route: 065
     Dates: start: 20171009
  3. NEURORUBIN [Concomitant]
     Indication: BACK PAIN
     Dosage: UNK
     Route: 065
     Dates: start: 20171009

REACTIONS (6)
  - Respiratory distress [Recovered/Resolved]
  - Dyspnoea [Recovered/Resolved]
  - Cough [Recovered/Resolved]
  - Sneezing [Recovered/Resolved]
  - Respiratory arrest [Recovered/Resolved]
  - Respiratory failure [Recovered/Resolved]

NARRATIVE: CASE EVENT DATE: 20171009
